FAERS Safety Report 8834007 (Version 1)
Quarter: 2012Q4

REPORT INFORMATION
  Report Type: 
  Country: US (occurrence: US)
  Receive Date: 20121010
  Receipt Date: 20121010
  Transmission Date: 20130627
  Serious: Yes (Other)
  Sender: FDA-Public Use
  Company Number: CHPA2012US020995

PATIENT
  Age: 92 Year
  Sex: Male

DRUGS (2)
  1. BENEFIBER W/ WHEAT DEXTRIN [Suspect]
     Indication: CONSTIPATION
     Dosage: 3 TSP, QD or QOD
     Route: 048
  2. HYDROCODONE W/ACETAMINOPHEN [Concomitant]
     Indication: PAIN
     Dosage: Unk, Unk
     Route: 048

REACTIONS (3)
  - Neoplasm malignant [Unknown]
  - Off label use [Unknown]
  - Incorrect dose administered [Unknown]
